FAERS Safety Report 11302835 (Version 2)
Quarter: 2015Q3

REPORT INFORMATION
  Report Type: Spontaneous
  Country: PL (occurrence: PL)
  Receive Date: 20150723
  Receipt Date: 20150728
  Transmission Date: 20151125
  Serious: Yes (Other)
  Sender: FDA-Public Use
  Company Number: PL-009507513-1507POL008290

PATIENT
  Age: 66 Year
  Sex: Male

DRUGS (4)
  1. POLOCARD [Concomitant]
     Active Substance: ASPIRIN
     Dosage: UNK
  2. TEMODAL [Suspect]
     Active Substance: TEMOZOLOMIDE
     Indication: GLIOBLASTOMA MULTIFORME
     Dosage: INITIAL 6 WEEKS, THEN 5 DAYS CYCLES ON MONTHLY BASIS (3 CYCLES IN TOTAL)
     Route: 048
     Dates: start: 201501, end: 20150525
  3. TRITACE [Concomitant]
     Active Substance: RAMIPRIL
     Dosage: UNK
  4. INDAPEN [Concomitant]
     Active Substance: INDAPAMIDE
     Dosage: UNK

REACTIONS (1)
  - Neoplasm progression [Recovering/Resolving]

NARRATIVE: CASE EVENT DATE: 201505
